FAERS Safety Report 23396501 (Version 1)
Quarter: 2024Q1

REPORT INFORMATION
  Report Type: Spontaneous
  Country: US (occurrence: US)
  Receive Date: 20240112
  Receipt Date: 20240112
  Transmission Date: 20240409
  Serious: Yes (Death, Hospitalization)
  Sender: FDA-Public Use
  Company Number: US-BAYER-2024A002379

PATIENT
  Age: 46 Year
  Sex: Female

DRUGS (11)
  1. MAGNESIUM OXIDE [Suspect]
     Active Substance: MAGNESIUM OXIDE
     Route: 048
  2. CALCIUM CARBONATE [Suspect]
     Active Substance: CALCIUM CARBONATE
     Route: 048
  3. CYANOCOBALAMIN [Suspect]
     Active Substance: CYANOCOBALAMIN
     Route: 048
  4. CAFFEINE [Suspect]
     Active Substance: CAFFEINE
     Route: 048
  5. HOMEOPATHICS [Suspect]
     Active Substance: ARNICA MONTANA\CAUSTICUM\COMFREY ROOT\HOMEOPATHICS\LEDUM PALUSTRE TWIG\PSEUDOGNAPHALIUM OBTUSIFOLIUM
     Route: 048
  6. OXITRIPTAN [Suspect]
     Active Substance: OXITRIPTAN
     Route: 048
  7. ACETYLCARNITINE [Suspect]
     Active Substance: ACETYLCARNITINE
     Route: 048
  8. INOSITOL [Suspect]
     Active Substance: INOSITOL
     Route: 048
  9. CYSTINE [Suspect]
     Active Substance: CYSTINE
     Route: 048
  10. VITAMINS NOS [Suspect]
     Active Substance: VITAMINS
     Route: 048
  11. AMPHETAMINE [Suspect]
     Active Substance: AMPHETAMINE
     Route: 048

REACTIONS (2)
  - Product use issue [Fatal]
  - Toxicity to various agents [Fatal]
